FAERS Safety Report 5387584-4 (Version None)
Quarter: 2007Q3

REPORT INFORMATION
  Report Type: 
  Country: None (occurrence: None)
  Receive Date: 20070711
  Receipt Date: 20070711
  Transmission Date: 20080115
  Serious: Yes (Hospitalization)
  Sender: FDA-Public Use
  Company Number: None

PATIENT
  Age: 61 Year
  Sex: Female
  Weight: 63.5036 kg

DRUGS (2)
  1. TAXOTERE [Suspect]
     Indication: BREAST CANCER
     Dosage: 75MG/M2  Q3WKS  IV BOLUS
     Route: 040
     Dates: start: 20070606
  2. XELODA [Suspect]
     Indication: BREAST CANCER
     Dosage: 1000MG/M2 14DAYS Q3WKS  PO
     Route: 048
     Dates: start: 20070606

REACTIONS (6)
  - ASTHENIA [None]
  - CANDIDIASIS [None]
  - FAILURE TO THRIVE [None]
  - FEBRILE NEUTROPENIA [None]
  - ORAL INTAKE REDUCED [None]
  - PAIN [None]
